FAERS Safety Report 11207399 (Version 1)
Quarter: 2015Q2

REPORT INFORMATION
  Report Type: Spontaneous
  Country: ES (occurrence: ES)
  Receive Date: 20150622
  Receipt Date: 20150622
  Transmission Date: 20150821
  Serious: Yes (Other)
  Sender: FDA-Public Use
  Company Number: ES-FRESENIUS KABI-FK201502926

PATIENT
  Age: 5 Year
  Sex: Male

DRUGS (2)
  1. MERCAPTOPURINE (MANUFACTURER UNKNOWN) [Suspect]
     Active Substance: MERCAPTOPURINE
     Indication: LYMPHOCYTIC LEUKAEMIA
     Route: 065
  2. METHOTREXATE (MANUFACTURER UNKNOWN) [Suspect]
     Active Substance: METHOTREXATE
     Indication: LYMPHOCYTIC LEUKAEMIA
     Route: 065

REACTIONS (1)
  - Trichodysplasia spinulosa [Recovered/Resolved]
